FAERS Safety Report 7761595-3 (Version None)
Quarter: 2011Q3

REPORT INFORMATION
  Report Type: 
  Country: None (occurrence: None)
  Receive Date: 20110920
  Receipt Date: 20110912
  Transmission Date: 20111222
  Serious: Yes (Hospitalization)
  Sender: FDA-Public Use
  Company Number: IE-B.I. PHARMACEUTICALS,INC./RIDGEFIELD-2011-UK-00733UK

PATIENT
  Age: 66 Year
  Sex: Male
  Weight: 107.9 kg

DRUGS (8)
  1. PRADAXA [Suspect]
     Indication: HIP ARTHROPLASTY
     Dosage: 220 MG
     Route: 048
     Dates: start: 20110704, end: 20110711
  2. ESOMEPRAZOLE SODIUM [Concomitant]
     Indication: GASTROOESOPHAGEAL REFLUX DISEASE
     Dosage: 20 MG
     Route: 048
  3. DICLOFENAC SODIUM [Concomitant]
     Indication: PAIN
     Dosage: 25MG BD
     Route: 048
     Dates: end: 20110704
  4. TEMAZEPAM [Concomitant]
     Indication: SEDATIVE THERAPY
     Dosage: 10 MG
     Route: 048
     Dates: start: 20110707
  5. FUCIDIC ACID [Concomitant]
     Indication: ARTHRITIS INFECTIVE
     Dosage: 1.5G (500MG TDS)
     Route: 048
     Dates: start: 20110708
  6. TEMISARTAN [Concomitant]
     Dosage: 80 MG
     Route: 048
  7. TRAMADOL HCL [Concomitant]
     Indication: PAIN
     Dosage: 50MG - 300MG PRN
     Route: 048
  8. FLOXACILLIN SODIUM [Concomitant]
     Indication: ARTHRITIS INFECTIVE
     Dosage: 4G (1G QDS)
     Route: 042
     Dates: start: 20110708

REACTIONS (4)
  - STAPHYLOCOCCAL INFECTION [None]
  - ENTEROCOCCAL INFECTION [None]
  - HAEMOGLOBIN DECREASED [None]
  - WOUND SECRETION [None]
